FAERS Safety Report 7509609-X (Version None)
Quarter: 2011Q2

REPORT INFORMATION
  Report Type: 
  Country: None (occurrence: None)
  Receive Date: 20110527
  Receipt Date: 20110509
  Transmission Date: 20111010
  Serious: No
  Sender: FDA-Public Use
  Company Number: US-B.I. PHARMACEUTICALS,INC./RIDGEFIELD-2011-BP-02160BP

PATIENT
  Sex: Female

DRUGS (11)
  1. ZOCOR [Concomitant]
  2. ALPRAZOLAM [Concomitant]
  3. LISINOPRIL [Concomitant]
  4. PRADAXA [Suspect]
     Dosage: 150 MG
     Dates: start: 20110221
  5. MULTIVITAMIN [Concomitant]
  6. MULTI-VITAMIN [Concomitant]
  7. PRADAXA [Suspect]
     Indication: ATRIAL FIBRILLATION
     Dosage: 300 MG
     Route: 048
     Dates: start: 20110113, end: 20110221
  8. VITAMIN D [Concomitant]
  9. LEVOXYL [Concomitant]
     Indication: THYROID DISORDER
  10. ZOLOFT [Concomitant]
     Dosage: 200 MG
  11. TAZTIA [Concomitant]

REACTIONS (8)
  - MENTAL IMPAIRMENT [None]
  - FEAR [None]
  - FATIGUE [None]
  - DISORIENTATION [None]
  - DIZZINESS [None]
  - FEELING ABNORMAL [None]
  - ASTHENIA [None]
  - STRESS [None]
